FAERS Safety Report 20813614 (Version 3)
Quarter: 2022Q2

REPORT INFORMATION
  Report Type: Spontaneous
  Country: US (occurrence: US)
  Receive Date: 20220511
  Receipt Date: 20220613
  Transmission Date: 20220721
  Serious: Yes (Other)
  Sender: FDA-Public Use
  Company Number: US-ORGANON-O2205USA000308

PATIENT
  Age: 28 Year
  Sex: Male

DRUGS (4)
  1. PROPECIA [Suspect]
     Active Substance: FINASTERIDE
     Indication: Alopecia
     Dosage: 1 MILLIGRAM, DAILY
     Route: 048
     Dates: start: 20210629, end: 202203
  2. PROPECIA [Suspect]
     Active Substance: FINASTERIDE
     Dosage: 1 MILLIGRAM, DAILY
     Route: 048
     Dates: start: 202203, end: 2022
  3. SERTRALINE [Concomitant]
     Active Substance: SERTRALINE HYDROCHLORIDE
     Indication: Anxiety
     Dosage: 100 MILLIGRAM, QD
     Route: 048
  4. LIALDA [Concomitant]
     Active Substance: MESALAMINE
     Dosage: 1.2 MILLIGRAM, QD
     Route: 048

REACTIONS (9)
  - Suicidal ideation [Recovered/Resolved]
  - Erectile dysfunction [Not Recovered/Not Resolved]
  - Burning sensation [Unknown]
  - Pelvic pain [Unknown]
  - Penis disorder [Unknown]
  - Prostatitis [Unknown]
  - Testicular pain [Not Recovered/Not Resolved]
  - Libido decreased [Not Recovered/Not Resolved]
  - Intentional product use issue [Unknown]

NARRATIVE: CASE EVENT DATE: 20220301
